FAERS Safety Report 4378422-7 (Version None)
Quarter: 2004Q2

REPORT INFORMATION
  Report Type: 
  Country: None (occurrence: None)
  Receive Date: 20040609
  Receipt Date: 20040502
  Transmission Date: 20050107
  Serious: Yes (Hospitalization, Other)
  Sender: FDA-Public Use
  Company Number: KII-2004-0010994

PATIENT
  Age: 23 Year
  Sex: Male

DRUGS (2)
  1. MORPHINE SULFATE [Suspect]
     Dosage: ORAL
     Route: 048
  2. BENZODIAZEPINES DERIVATIVES () [Suspect]
     Dosage: ORAL
     Route: 048

REACTIONS (16)
  - ACID BASE BALANCE ABNORMAL [None]
  - ASPARTATE AMINOTRANSFERASE INCREASED [None]
  - BLOOD BICARBONATE DECREASED [None]
  - BLOOD CREATINE PHOSPHOKINASE MB ABNORMAL [None]
  - BLOOD PH DECREASED [None]
  - BLOOD PRESSURE SYSTOLIC INCREASED [None]
  - BODY TEMPERATURE INCREASED [None]
  - COMA [None]
  - HEART RATE INCREASED [None]
  - INFECTION [None]
  - LUNG DISORDER [None]
  - MULTIPLE DRUG OVERDOSE [None]
  - OXYGEN SATURATION DECREASED [None]
  - PCO2 INCREASED [None]
  - PNEUMONIA ASPIRATION [None]
  - VOMITING [None]
